FAERS Safety Report 6241594-3 (Version None)
Quarter: 2009Q2

REPORT INFORMATION
  Report Type: 
  Country: None (occurrence: None)
  Receive Date: 20090623
  Receipt Date: 20041223
  Transmission Date: 20091009
  Serious: Yes (Hospitalization)
  Sender: FDA-Public Use
  Company Number: TR-ROCHE-388054

PATIENT
  Sex: Male
  Weight: 64 kg

DRUGS (20)
  1. DACLIZUMAB [Suspect]
     Route: 042
     Dates: start: 20041014
  2. DACLIZUMAB [Suspect]
     Route: 042
     Dates: end: 20041203
  3. MYCOPHENOLATE MOFETIL [Suspect]
     Route: 048
     Dates: start: 20041028
  4. MYCOPHENOLATE MOFETIL [Suspect]
     Route: 048
     Dates: start: 20041101
  5. MYCOPHENOLATE MOFETIL [Suspect]
     Route: 048
     Dates: start: 20041102, end: 20041104
  6. MYCOPHENOLATE MOFETIL [Suspect]
     Route: 048
     Dates: start: 20041116
  7. MYCOPHENOLATE MOFETIL [Suspect]
     Route: 048
     Dates: start: 20041118
  8. MYCOPHENOLATE MOFETIL [Suspect]
     Route: 048
     Dates: start: 20041120
  9. MYCOPHENOLATE MOFETIL [Suspect]
     Route: 048
     Dates: start: 20041213
  10. MYCOPHENOLATE MOFETIL [Suspect]
     Route: 048
     Dates: start: 20041214, end: 20041215
  11. TACROLIMUS [Suspect]
     Route: 048
     Dates: start: 20041014
  12. METHYLPREDNISOLONE [Suspect]
     Route: 048
     Dates: start: 20041013, end: 20041014
  13. METHYLPREDNISOLONE [Suspect]
     Route: 048
     Dates: start: 20041018
  14. METHYLPREDNISOLONE [Suspect]
     Route: 042
     Dates: start: 20041015, end: 20041017
  15. ACYCLOVIR [Concomitant]
     Route: 048
     Dates: start: 20041013
  16. SULFAMETHOXAZOLE AND TRIMETHOPRIM [Concomitant]
     Route: 048
     Dates: start: 20041013
  17. FLUCONAZOLE [Concomitant]
     Route: 048
     Dates: start: 20041013
  18. LANSOPRAZOLE [Concomitant]
     Route: 048
     Dates: start: 20041013
  19. ROSIGLITAZONE [Concomitant]
     Route: 048
     Dates: start: 20041113, end: 20041206
  20. ESOMEPRAZOLE MAGNESIUM [Concomitant]
     Route: 048
     Dates: start: 20041013

REACTIONS (2)
  - BRONCHOPULMONARY ASPERGILLOSIS [None]
  - PNEUMONIA [None]
